FAERS Safety Report 15798130 (Version 3)
Quarter: 2019Q1

REPORT INFORMATION
  Report Type: Spontaneous
  Country: US (occurrence: US)
  Receive Date: 20190108
  Receipt Date: 20190208
  Transmission Date: 20190417
  Serious: No
  Sender: FDA-Public Use
  Company Number: US-TEVA-2018-US-987735

PATIENT
  Age: 37 Year
  Sex: Female

DRUGS (3)
  1. CLONAZEPAM ACTAVIS [Interacting]
     Active Substance: CLONAZEPAM
     Indication: ANXIETY DISORDER
     Dosage: 1 DOSAGE FORMS DAILY; 1DF= 1 TABLET
     Dates: start: 201812
  2. CLONAZEPAM ACTAVIS [Interacting]
     Active Substance: CLONAZEPAM
     Indication: PANIC DISORDER
  3. CLONAZEPAM ACTAVIS [Suspect]
     Active Substance: CLONAZEPAM
     Indication: SEIZURE
     Dosage: 1 DOSAGE FORMS DAILY; 1DF= 1 TABLET
     Dates: start: 20181130

REACTIONS (14)
  - Chest discomfort [Unknown]
  - Dizziness [Unknown]
  - Dyspnoea [Recovering/Resolving]
  - Product substitution issue [Unknown]
  - Diarrhoea [Unknown]
  - Drug ineffective [Unknown]
  - Dyspnoea [Unknown]
  - Nausea [Unknown]
  - Drug interaction [Unknown]
  - Palpitations [Recovering/Resolving]
  - Dyspepsia [Recovering/Resolving]
  - Abdominal discomfort [Unknown]
  - Insomnia [Unknown]
  - Drug intolerance [Unknown]

NARRATIVE: CASE EVENT DATE: 201812
